FAERS Safety Report 25277509 (Version 1)
Quarter: 2025Q2

REPORT INFORMATION
  Report Type: Spontaneous
  Country: US (occurrence: US)
  Receive Date: 20250507
  Receipt Date: 20250507
  Transmission Date: 20250716
  Serious: Yes (Hospitalization, Other)
  Sender: RANBAXY
  Company Number: US-SUN PHARMACEUTICAL INDUSTRIES LTD-2025R1-506275

PATIENT
  Age: 43 Year
  Sex: Male

DRUGS (7)
  1. BUMETANIDE [Suspect]
     Active Substance: BUMETANIDE
     Indication: Right ventricular failure
     Route: 042
  2. BUMETANIDE [Suspect]
     Active Substance: BUMETANIDE
     Indication: Acute kidney injury
  3. ADEMPAS [Suspect]
     Active Substance: RIOCIGUAT
     Indication: Pulmonary hypertension
     Route: 065
  4. METOLAZONE [Suspect]
     Active Substance: METOLAZONE
     Indication: Right ventricular failure
     Route: 042
  5. METOLAZONE [Suspect]
     Active Substance: METOLAZONE
     Indication: Acute kidney injury
  6. OPSUMIT [Suspect]
     Active Substance: MACITENTAN
     Indication: Pulmonary hypertension
     Route: 065
  7. UPTRAVI [Suspect]
     Active Substance: SELEXIPAG
     Indication: Pulmonary hypertension
     Route: 065

REACTIONS (4)
  - Condition aggravated [Unknown]
  - Oliguria [Recovering/Resolving]
  - Azotaemia [Recovering/Resolving]
  - Treatment failure [Unknown]
